FAERS Safety Report 9327789 (Version 1)
Quarter: 2013Q2

REPORT INFORMATION
  Report Type: Spontaneous
  Country: ES (occurrence: ES)
  Receive Date: 20130604
  Receipt Date: 20130604
  Transmission Date: 20140414
  Serious: Yes (Other)
  Sender: FDA-Public Use
  Company Number: ES-BAXTER-2013BAX020103

PATIENT
  Age: 53 Year
  Sex: Male
  Weight: 70 kg

DRUGS (1)
  1. GENOXAL 1 G INYECTABLE [Suspect]
     Indication: BONE MARROW CONDITIONING REGIMEN
     Route: 042
     Dates: start: 20130422, end: 20130423

REACTIONS (8)
  - Headache [Recovered/Resolved]
  - Chest pain [Recovered/Resolved]
  - Parotitis [Recovered/Resolved]
  - Osteitis [Recovered/Resolved]
  - Hypoaesthesia oral [Recovered/Resolved]
  - Hypoaesthesia oral [Recovered/Resolved]
  - Rhinorrhoea [Recovered/Resolved]
  - Flushing [Recovered/Resolved]
